FAERS Safety Report 9037066 (Version 1)
Quarter: 2013Q1

REPORT INFORMATION
  Report Type: Spontaneous
  Country: US (occurrence: None)
  Receive Date: 20130115
  Receipt Date: 20130115
  Transmission Date: 20140127
  Serious: Yes (Death)
  Sender: FDA-Public Use
  Company Number: UTC-027744

PATIENT
  Age: 75 Year
  Sex: Female

DRUGS (1)
  1. TYVASO (6 MICROGRAM, AEROSOL FOR INHALATION) (TREPROSTINIL SODIUM) [Suspect]
     Dosage: 168 MCG (42 MCG, 4 IN 1 D), INHALATION
     Route: 055
     Dates: start: 20121116

REACTIONS (1)
  - Death [None]
